FAERS Safety Report 15537525 (Version 2)
Quarter: 2018Q4

REPORT INFORMATION
  Report Type: Spontaneous
  Country: CN (occurrence: CN)
  Receive Date: 20181022
  Receipt Date: 20181022
  Transmission Date: 20190205
  Serious: Yes (Other)
  Sender: FDA-Public Use
  Company Number: PHHY2018CN127235

PATIENT
  Age: 5 Year

DRUGS (5)
  1. FLUOROMETHOLONE. [Concomitant]
     Active Substance: FLUOROMETHOLONE
     Indication: POSTOPERATIVE CARE
     Dosage: UNK UNK, QID
     Route: 065
  2. SODIUM HYALURONATE [Concomitant]
     Active Substance: HYALURONATE SODIUM
     Indication: POSTOPERATIVE CARE
     Dosage: UNK UNK, QD
     Route: 065
  3. TOBRADEX [Suspect]
     Active Substance: DEXAMETHASONE\TOBRAMYCIN
     Indication: POSTOPERATIVE CARE
     Dosage: UNK UNK, QD
     Route: 047
  4. PRANOPROFEN [Concomitant]
     Active Substance: PRANOPROFEN
     Indication: POSTOPERATIVE CARE
     Dosage: UNK UNK, QD
     Route: 065
  5. TOBRAMYCIN. [Suspect]
     Active Substance: TOBRAMYCIN
     Indication: POSTOPERATIVE CARE
     Dosage: UNK UNK, QD
     Route: 047

REACTIONS (6)
  - Vomiting [Unknown]
  - Ocular hypertension [Recovering/Resolving]
  - Optic neuritis [Unknown]
  - Optic atrophy [Unknown]
  - Optic nerve cup/disc ratio increased [Recovering/Resolving]
  - Glaucoma [Unknown]
